FAERS Safety Report 21902779 (Version 2)
Quarter: 2023Q1

REPORT INFORMATION
  Report Type: Spontaneous
  Country: US (occurrence: US)
  Receive Date: 20230124
  Receipt Date: 20230127
  Transmission Date: 20230418
  Serious: No
  Sender: FDA-Public Use
  Company Number: US-BRISTOL-MYERS SQUIBB COMPANY-2023-010793

PATIENT
  Age: 43 Year
  Sex: Female

DRUGS (3)
  1. ZEPOSIA [Suspect]
     Active Substance: OZANIMOD HYDROCHLORIDE
     Indication: Multiple sclerosis
     Route: 048
     Dates: start: 202212
  2. ZEPOSIA [Suspect]
     Active Substance: OZANIMOD HYDROCHLORIDE
     Dosage: THEN TAKE 0.46 MG BY MOUTH 1 TIME A DAY FOR 3 DAYS
     Route: 048
     Dates: start: 202212
  3. ZEPOSIA [Suspect]
     Active Substance: OZANIMOD HYDROCHLORIDE
     Dosage: THEN 0.23 MG BY MOUTH 1 TIME A DAY FOR 4 DAYS
     Route: 048

REACTIONS (1)
  - Dizziness [Unknown]
